FAERS Safety Report 4454884-1 (Version None)
Quarter: 2004Q3

REPORT INFORMATION
  Report Type: 
  Country: None (occurrence: None)
  Receive Date: 20040921
  Receipt Date: 20040920
  Transmission Date: 20050211
  Serious: Yes (Other)
  Sender: FDA-Public Use
  Company Number: US-GLAXOSMITHKLINE-A0526453A

PATIENT
  Age: 60 Year
  Sex: Male

DRUGS (2)
  1. COREG [Suspect]
     Indication: HYPERTENSION
     Dosage: 12.5MG PER DAY
     Route: 048
  2. NO CONCURRENT MEDICATION [Concomitant]

REACTIONS (1)
  - VISUAL ACUITY REDUCED [None]
